FAERS Safety Report 5892946-2 (Version None)
Quarter: 2008Q3

REPORT INFORMATION
  Report Type: 
  Country: None (occurrence: None)
  Receive Date: 20080922
  Receipt Date: 20080922
  Transmission Date: 20090109
  Serious: Yes (Other)
  Sender: FDA-Public Use
  Company Number: None

PATIENT
  Sex: Female
  Weight: 99.3377 kg

DRUGS (1)
  1. LUPRON DEPOT [Suspect]
     Indication: PELVIC PAIN
     Dosage: 3.75 MG ONCE IM
     Route: 030
     Dates: start: 20080625, end: 20080925

REACTIONS (6)
  - BACK PAIN [None]
  - DYSPHAGIA [None]
  - DYSPNOEA [None]
  - MUSCLE SPASMS [None]
  - MUSCULAR WEAKNESS [None]
  - NECK PAIN [None]
